FAERS Safety Report 15771799 (Version 1)
Quarter: 2018Q4

REPORT INFORMATION
  Report Type: Spontaneous
  Country: US (occurrence: US)
  Receive Date: 20181228
  Receipt Date: 20181228
  Transmission Date: 20190205
  Serious: Yes (Other)
  Sender: FDA-Public Use
  Company Number: US-SA-2018SA392641

PATIENT
  Age: 51 Year
  Sex: Female
  Weight: 68.04 kg

DRUGS (3)
  1. TAXOTERE [Suspect]
     Active Substance: DOCETAXEL
     Dosage: 95 MG, Q3W
     Route: 042
     Dates: start: 19990826, end: 19990826
  2. TAXOTERE [Suspect]
     Active Substance: DOCETAXEL
     Indication: BREAST CANCER FEMALE
     Dosage: 95 MG, Q3W
     Route: 042
     Dates: start: 19990615, end: 19990615
  3. ADRIAMYCIN [DOXORUBICIN HYDROCHLORIDE] [Concomitant]

REACTIONS (1)
  - Alopecia [Not Recovered/Not Resolved]

NARRATIVE: CASE EVENT DATE: 20000101
